FAERS Safety Report 9467492 (Version 1)
Quarter: 2013Q3

REPORT INFORMATION
  Report Type: Spontaneous
  Country: US (occurrence: None)
  Receive Date: 20130819
  Receipt Date: 20130819
  Transmission Date: 20140515
  Serious: No
  Sender: FDA-Public Use
  Company Number: None

PATIENT
  Age: 43 Year
  Sex: Male
  Weight: 93.9 kg

DRUGS (1)
  1. ALFA 2 INTERFERON 2B [Suspect]
     Dates: end: 20130802

REACTIONS (3)
  - Lipase increased [None]
  - Pancreatitis [None]
  - Amylase increased [None]
